APPROVED DRUG PRODUCT: LATANOPROST
Active Ingredient: LATANOPROST
Strength: 0.005%
Dosage Form/Route: SOLUTION/DROPS;OPHTHALMIC
Application: A206519 | Product #001
Applicant: EUGIA PHARMA SPECIALITIES LTD
Approved: Sep 3, 2019 | RLD: No | RS: No | Type: DISCN